FAERS Safety Report 17287879 (Version 1)
Quarter: 2020Q1

REPORT INFORMATION
  Report Type: Spontaneous
  Country: US (occurrence: US)
  Receive Date: 20200120
  Receipt Date: 20200120
  Transmission Date: 20200409
  Serious: No
  Sender: FDA-Public Use
  Company Number: US-JNJFOC-20200107526

PATIENT
  Age: 72 Year

DRUGS (1)
  1. MENS ROGAINE EXTRA STRENGTH [Suspect]
     Active Substance: MINOXIDIL
     Indication: PRODUCT USED FOR UNKNOWN INDICATION
     Route: 061

REACTIONS (1)
  - Alopecia [Unknown]
